FAERS Safety Report 18657670 (Version 1)
Quarter: 2020Q4

REPORT INFORMATION
  Report Type: Other
  Country: CA (occurrence: CA)
  Receive Date: 20201224
  Receipt Date: 20201224
  Transmission Date: 20210114
  Serious: Yes (Disabling)
  Sender: FDA-Public Use
  Company Number: CA-APOTEX-2020AP024445

PATIENT
  Age: 73 Year
  Sex: Female

DRUGS (1)
  1. LATANOPROST. [Suspect]
     Active Substance: LATANOPROST
     Indication: GLAUCOMA
     Dosage: 0.005 PERCENT, QD
     Route: 047

REACTIONS (2)
  - Product substitution issue [Not Recovered/Not Resolved]
  - Vision blurred [Not Recovered/Not Resolved]
